FAERS Safety Report 5665440-1 (Version None)
Quarter: 2008Q1

REPORT INFORMATION
  Report Type: 
  Country: None (occurrence: None)
  Receive Date: 20080314
  Receipt Date: 20071204
  Transmission Date: 20080703
  Serious: No
  Sender: FDA-Public Use
  Company Number: US-ABBOTT-07P-163-0427471-00

PATIENT
  Sex: Male
  Weight: 66.284 kg

DRUGS (2)
  1. HUMIRA [Suspect]
     Indication: CROHN'S DISEASE
     Route: 058
     Dates: start: 20070910
  2. TRAMADOL HCL [Concomitant]
     Indication: PAIN IN EXTREMITY
     Route: 048
     Dates: start: 20060101

REACTIONS (3)
  - DYSURIA [None]
  - OVERDOSE [None]
  - PROSTATIC DISORDER [None]
